FAERS Safety Report 9507896 (Version 1)
Quarter: 2013Q3

REPORT INFORMATION
  Report Type: Other
  Country: GB (occurrence: GB)
  Receive Date: 20130909
  Receipt Date: 20130909
  Transmission Date: 20140515
  Serious: Yes (Hospitalization, Other)
  Sender: FDA-Public Use
  Company Number: GB-TARO PHARMACEUTICALS U.S.A., INC-2013SUN04584

PATIENT
  Age: 82 Year
  Sex: Female
  Weight: 65 kg

DRUGS (10)
  1. WARFARIN [Suspect]
     Indication: PRODUCT USED FOR UNKNOWN INDICATION
     Dosage: UNK
     Route: 065
  2. ZOLEDRONIC ACID [Interacting]
     Indication: OSTEOPOROTIC FRACTURE
     Dosage: 5 MG, UNK
     Route: 042
     Dates: start: 20130305, end: 20130305
  3. CALCICHEW D3 [Concomitant]
     Dosage: 1 DF, BID
  4. BRINZOLAMIDE [Concomitant]
     Dosage: 1 DF, QD
  5. CO-CODAMOL [Concomitant]
     Dosage: UNK
     Dates: start: 20130315
  6. FELODIPINE [Concomitant]
     Dosage: 5 MG, QD
  7. LEVOTHYROXINE [Concomitant]
     Dosage: 75 MCG, QD
  8. TIMOLOL [Concomitant]
     Dosage: 1 DF, QD
  9. TOLTERODINE [Concomitant]
     Dosage: 4 MG, QD
  10. VALSARTAN [Concomitant]
     Dosage: 80 MG, QD

REACTIONS (6)
  - Joint swelling [Recovered/Resolved]
  - Drug interaction [Unknown]
  - Mobility decreased [Unknown]
  - International normalised ratio increased [Recovered/Resolved]
  - Haematoma [Recovering/Resolving]
  - Asthenia [Unknown]
